FAERS Safety Report 5911317-3 (Version None)
Quarter: 2008Q4

REPORT INFORMATION
  Report Type: 
  Country: None (occurrence: None)
  Receive Date: 20081007
  Receipt Date: 20081006
  Transmission Date: 20090506
  Serious: Yes (Other)
  Sender: FDA-Public Use
  Company Number: DE-B.I. PHARMACEUTICALS,INC./RIDGEFIELD-2008-DE-05886DE

PATIENT
  Age: 1 Year
  Sex: Female

DRUGS (6)
  1. MICARDIS [Suspect]
     Dosage: UNKNOWN AMOUNT / NOT ASSURED INTAKE
     Route: 048
  2. ALLOPURINOL [Suspect]
     Dosage: UNKNOWN AMOUNT / ORAL / NOT ASSURED INTAKE
     Route: 048
  3. AMLODIPINE [Suspect]
     Dosage: UNKNOWN AMOUNT / ORAL / NOT ASSURED INTAKE
     Route: 048
  4. BISOPROLOL FUMARATE [Suspect]
     Dosage: UNKNOWN AMOUNT / ORAL / NOT ASSURED INTAKE
     Route: 048
  5. SIMVASTATIN [Suspect]
     Dosage: UNKNOWN AMOUNT / ORAL / NOT ASSURED INTAKE
     Route: 048
  6. TAMBOCOR [Suspect]
     Dosage: UNKNOWN AMOUNT / ORAL / NOT ASSURED INTAKE
     Route: 048

REACTIONS (1)
  - MEDICATION ERROR [None]
